FAERS Safety Report 10023960 (Version 1)
Quarter: 2014Q1

REPORT INFORMATION
  Report Type: Spontaneous
  Country: US (occurrence: US)
  Receive Date: 20140320
  Receipt Date: 20140320
  Transmission Date: 20141002
  Serious: Yes (Other)
  Sender: FDA-Public Use
  Company Number: US-ASTELLAS-2014US002618

PATIENT
  Age: 33 Year
  Sex: Male

DRUGS (1)
  1. PROGRAF [Suspect]
     Indication: TRANSPLANT
     Dosage: 2 MG/DAY, BID
     Route: 048
     Dates: start: 1996

REACTIONS (2)
  - Pancreas transplant [Unknown]
  - Renal transplant [Unknown]
